FAERS Safety Report 4272897-X (Version None)
Quarter: 2004Q1

REPORT INFORMATION
  Report Type: 
  Country: None (occurrence: None)
  Receive Date: 20040114
  Receipt Date: 20040106
  Transmission Date: 20041129
  Serious: No
  Sender: FDA-Public Use
  Company Number: 200400332

PATIENT
  Age: 18 Month
  Sex: Male

DRUGS (1)
  1. TYLENOL [Suspect]
     Indication: PYREXIA
     Dosage: PO
     Route: 048
     Dates: start: 20040102

REACTIONS (7)
  - ABNORMAL BEHAVIOUR [None]
  - BODY TEMPERATURE INCREASED [None]
  - CIRCULATORY COLLAPSE [None]
  - CYANOSIS [None]
  - EYE ROLLING [None]
  - PULSE ABSENT [None]
  - RESPIRATORY ARREST [None]
